FAERS Safety Report 4377676-0 (Version None)
Quarter: 2004Q2

REPORT INFORMATION
  Report Type: 
  Country: None (occurrence: None)
  Receive Date: 20040615
  Receipt Date: 20040609
  Transmission Date: 20050107
  Serious: Yes (Other)
  Sender: FDA-Public Use
  Company Number: AU-ROCHE-370523

PATIENT
  Sex: Female

DRUGS (6)
  1. RIVOTRIL [Suspect]
     Indication: DRUG USE FOR UNKNOWN INDICATION
     Route: 065
     Dates: end: 20021024
  2. ASPIRIN [Suspect]
     Indication: DRUG USE FOR UNKNOWN INDICATION
     Route: 065
     Dates: end: 20021025
  3. VIOXX [Suspect]
     Indication: PAIN
     Route: 048
     Dates: start: 20020924, end: 20021025
  4. MODURETIC 5-50 [Suspect]
     Indication: DRUG USE FOR UNKNOWN INDICATION
     Route: 048
     Dates: end: 20021025
  5. VALPROIC ACID [Concomitant]
  6. FLUCLOXACILLIN [Concomitant]

REACTIONS (5)
  - ABNORMAL BEHAVIOUR [None]
  - DELIRIUM [None]
  - HYPONATRAEMIA [None]
  - MELAENA [None]
  - PEPTIC ULCER [None]
